FAERS Safety Report 15422244 (Version 1)
Quarter: 2018Q3

REPORT INFORMATION
  Report Type: Spontaneous
  Country: ES (occurrence: ES)
  Receive Date: 20180924
  Receipt Date: 20180924
  Transmission Date: 20181010
  Serious: Yes (Hospitalization, Other)
  Sender: FDA-Public Use
  Company Number: ES-ALEXION PHARMACEUTICALS INC-A201812097

PATIENT
  Age: 9 Month
  Weight: 8 kg

DRUGS (1)
  1. SOLIRIS [Suspect]
     Active Substance: ECULIZUMAB
     Indication: ATYPICAL HAEMOLYTIC URAEMIC SYNDROME
     Dosage: UNK
     Route: 065
     Dates: start: 201711, end: 201806

REACTIONS (22)
  - Glomerulonephritis membranoproliferative [Unknown]
  - Erythema multiforme [Unknown]
  - Incorrect dose administered [Unknown]
  - Poor sucking reflex [Unknown]
  - Macroangiopathy [Unknown]
  - Proteinuria [Unknown]
  - Transient ischaemic attack [Unknown]
  - Cerebral artery stenosis [Unknown]
  - Haemoglobin decreased [Unknown]
  - Platelet count increased [Unknown]
  - Hypertransaminasaemia [Unknown]
  - Necrosis [Unknown]
  - Thrombotic microangiopathy [Unknown]
  - Haemolysis [Unknown]
  - Creatinine urine increased [Unknown]
  - Carotid artery stenosis [Unknown]
  - Ischaemia [Unknown]
  - Altered state of consciousness [Unknown]
  - Moyamoya disease [Unknown]
  - Drug ineffective [Unknown]
  - Hypertension [Unknown]
  - Hemiparesis [Unknown]
